FAERS Safety Report 5276497-4 (Version None)
Quarter: 2007Q1

REPORT INFORMATION
  Report Type: 
  Country: None (occurrence: None)
  Receive Date: 20061213
  Receipt Date: 20030819
  Transmission Date: 20070707
  Serious: No
  Sender: FDA-Public Use
  Company Number: 2003UW10576

PATIENT
  Age: 60 Year
  Sex: Female

DRUGS (5)
  1. SEROQUEL [Suspect]
     Dosage: 300 MG PO
     Route: 048
  2. LITHIUM CARBONATE [Concomitant]
  3. LIPITOR [Concomitant]
  4. SYNTHROID [Concomitant]
  5. DOXEPIN HCL [Concomitant]

REACTIONS (1)
  - TARDIVE DYSKINESIA [None]
